FAERS Safety Report 16387307 (Version 2)
Quarter: 2019Q3

REPORT INFORMATION
  Report Type: Spontaneous
  Country: KR (occurrence: KR)
  Receive Date: 20190604
  Receipt Date: 20190711
  Transmission Date: 20191004
  Serious: No
  Sender: FDA-Public Use
  Company Number: KR-ROCHE-2331413

PATIENT
  Sex: Female

DRUGS (2)
  1. STEROIDS [Concomitant]
     Active Substance: UNSPECIFIED INGREDIENT
     Route: 065
  2. ACTEMRA [Suspect]
     Active Substance: TOCILIZUMAB
     Indication: STILL^S DISEASE
     Route: 042

REACTIONS (2)
  - Joint space narrowing [Unknown]
  - Arthritis [Not Recovered/Not Resolved]
